FAERS Safety Report 10034582 (Version 2)
Quarter: 2014Q2

REPORT INFORMATION
  Report Type: Spontaneous
  Country: BR (occurrence: BR)
  Receive Date: 20140325
  Receipt Date: 20140528
  Transmission Date: 20141212
  Serious: Yes (Other)
  Sender: FDA-Public Use
  Company Number: BR-ASTRAZENECA-2014SE18911

PATIENT
  Age: 24821 Day
  Sex: Female
  Weight: 48.5 kg

DRUGS (8)
  1. ATACAND HCT [Suspect]
     Indication: HYPERTENSION
     Dosage: 16/12.5MG DAILY
     Route: 048
  2. CRESTOR [Suspect]
     Indication: BLOOD CHOLESTEROL INCREASED
     Route: 048
     Dates: start: 2007
  3. SUSTRATE [Concomitant]
     Indication: ANTIPLATELET THERAPY
     Dosage: THREE TIMES A DAY
     Route: 048
  4. COUMADIN [Concomitant]
     Indication: ANTIPLATELET THERAPY
     Dosage: DAILY
     Route: 048
  5. CITALOPRAM [Concomitant]
     Indication: DEPRESSION
     Dosage: DAILY
     Route: 048
  6. FRONTAL [Concomitant]
     Indication: SLEEP DISORDER
     Dosage: 2MG AT NIGHT
     Route: 048
  7. ARTICO [Concomitant]
     Indication: BONE DISORDER
     Dosage: DAILY
     Route: 048
  8. OSCAL D [Concomitant]
     Indication: BONE DISORDER
     Dosage: DAILY
     Route: 048

REACTIONS (1)
  - Viral infection [Recovered/Resolved]
